FAERS Safety Report 7556608-8 (Version None)
Quarter: 2011Q2

REPORT INFORMATION
  Report Type: 
  Country: None (occurrence: None)
  Receive Date: 20110615
  Receipt Date: 20110615
  Transmission Date: 20111010
  Serious: Yes (Other)
  Sender: FDA-Public Use
  Company Number: None

PATIENT
  Age: 56 Year
  Sex: Male
  Weight: 125.1928 kg

DRUGS (2)
  1. OXYMORPHONE [Suspect]
     Indication: PAIN
     Dosage: 1/2 TO 1 EVERY 6 HOURS PO 2 PILLS; ONE EACH DAY
     Route: 048
     Dates: start: 20110423, end: 20110424
  2. OXYMORPHONE [Suspect]
     Indication: PAIN
     Dosage: 1/2 TO 1 EVERY 6 HOURS PO
     Route: 048
     Dates: start: 20110121, end: 20110124

REACTIONS (3)
  - CHRONIC OBSTRUCTIVE PULMONARY DISEASE [None]
  - PRODUCT SUBSTITUTION ISSUE [None]
  - CONDITION AGGRAVATED [None]
